FAERS Safety Report 9526337 (Version 2)
Quarter: 2013Q3

REPORT INFORMATION
  Report Type: Report from Study
  Country: SE (occurrence: SE)
  Receive Date: 20130916
  Receipt Date: 20130920
  Transmission Date: 20140515
  Serious: Yes (Death)
  Sender: FDA-Public Use
  Company Number: SE-AMGEN-SWECT2013064506

PATIENT
  Age: 85 Year
  Sex: Female

DRUGS (1)
  1. ETANERCEPT [Suspect]
     Indication: RHEUMATOID ARTHRITIS
     Dosage: UNK
     Route: 065
     Dates: start: 20030903, end: 20090507

REACTIONS (3)
  - Acute myocardial infarction [Fatal]
  - Cardiac failure acute [Fatal]
  - Malignant melanoma stage II [Fatal]
